FAERS Safety Report 8490050-0 (Version None)
Quarter: 2012Q3

REPORT INFORMATION
  Report Type: 
  Country: None (occurrence: None)
  Receive Date: 20120705
  Receipt Date: 20120621
  Transmission Date: 20120928
  Serious: No
  Sender: FDA-Public Use
  Company Number: US-JNJFOC-20101203463

PATIENT
  Sex: Male
  Weight: 87.09 kg

DRUGS (1)
  1. INVEGA [Suspect]
     Indication: MENTAL DISORDER
     Route: 048
     Dates: start: 20101116, end: 20101116

REACTIONS (5)
  - SOMNOLENCE [None]
  - DIZZINESS [None]
  - DRY MOUTH [None]
  - DYSPHAGIA [None]
  - COUGH [None]
